FAERS Safety Report 5517158-3 (Version None)
Quarter: 2007Q4

REPORT INFORMATION
  Report Type: 
  Country: None (occurrence: None)
  Receive Date: 20071114
  Receipt Date: 20071113
  Transmission Date: 20080405
  Serious: Yes (Other)
  Sender: FDA-Public Use
  Company Number: D0054517A

PATIENT
  Age: 37 Year
  Sex: Female

DRUGS (3)
  1. AUGMENTIN '125' [Suspect]
     Indication: INJECTION SITE ABSCESS
     Dosage: 1000MG UNKNOWN
     Route: 048
     Dates: start: 20070903, end: 20070909
  2. IBUPROFEN [Concomitant]
     Indication: PAIN
     Route: 065
     Dates: start: 20070903, end: 20070917
  3. HUMALOG [Concomitant]
     Indication: DIABETES MELLITUS
     Route: 065

REACTIONS (3)
  - CHILLS [None]
  - FEAR [None]
  - PANIC REACTION [None]
